FAERS Safety Report 11659378 (Version 1)
Quarter: 2015Q4

REPORT INFORMATION
  Report Type: Report from Study
  Country: BR (occurrence: BR)
  Receive Date: 20151026
  Receipt Date: 20151026
  Transmission Date: 20160304
  Serious: Yes (Other)
  Sender: FDA-Public Use
  Company Number: BR-ABBVIE-15K-020-1486437-00

PATIENT
  Sex: Male
  Weight: 80 kg

DRUGS (2)
  1. METHOTREXATE [Concomitant]
     Active Substance: METHOTREXATE
     Indication: ARTHRITIS
     Route: 048
     Dates: start: 2011
  2. HUMIRA [Suspect]
     Active Substance: ADALIMUMAB
     Indication: RHEUMATOID ARTHRITIS
     Route: 058
     Dates: start: 2011, end: 201410

REACTIONS (6)
  - Accident [Recovered/Resolved]
  - Femur fracture [Recovered/Resolved]
  - Nausea [Recovering/Resolving]
  - Post procedural complication [Unknown]
  - Jaw fracture [Recovered/Resolved]
  - Bone erosion [Recovered/Resolved]

NARRATIVE: CASE EVENT DATE: 2014
